FAERS Safety Report 7627288-8 (Version None)
Quarter: 2011Q3

REPORT INFORMATION
  Report Type: 
  Country: None (occurrence: None)
  Receive Date: 20110721
  Receipt Date: 20110718
  Transmission Date: 20111222
  Serious: Yes (Death, Hospitalization, Other)
  Sender: FDA-Public Use
  Company Number: PHEH2006US13340

PATIENT
  Sex: Female

DRUGS (60)
  1. AREDIA [Suspect]
     Indication: OSTEOPOROSIS
     Dosage: 90 MG, MONTHLY
     Route: 042
     Dates: start: 19990319
  2. CALCIUM W/VITAMIN D NOS [Concomitant]
     Dosage: UNK
  3. DILAUDID [Concomitant]
     Indication: PAIN
     Dosage: 2 MG
  4. HYDROCHLOROTHIAZIDE [Concomitant]
     Dosage: 25 MG / DAILY
  5. MORPHINE [Concomitant]
     Dosage: UNK
     Route: 062
  6. NEURONTIN [Concomitant]
     Dosage: 300 MG / BID
     Route: 048
  7. ASPIRIN [Concomitant]
  8. PRILOSEC [Concomitant]
  9. CALCITONIN SALMON [Concomitant]
  10. PRILOSEC [Concomitant]
  11. AREDIA [Suspect]
     Dosage: 45 MG, QMO
     Dates: end: 20050701
  12. FLONASE [Concomitant]
     Dosage: UNK
     Route: 045
  13. DEXAMETHASONE [Concomitant]
  14. DIPHENHYDRAMINE HCL [Concomitant]
  15. DEPO-MEDROL [Concomitant]
  16. ABILIFY [Concomitant]
     Dosage: 5 MG, BID
     Route: 048
  17. ROXANOL [Concomitant]
     Dosage: 5 MG, UNK
  18. AREDIA [Suspect]
     Dosage: 90 MG, QMO
     Dates: start: 19991101, end: 20020314
  19. TYLENOL-500 [Concomitant]
     Dosage: UNK
  20. SENOKOT                                 /USA/ [Concomitant]
     Dosage: UNK
  21. PAXIL [Concomitant]
     Dosage: 25 MG / DAILY
  22. ENOXAPARIN [Concomitant]
     Dosage: 40 MG, UNK
  23. DURAGESIC-100 [Concomitant]
     Dosage: 25 MG, PRN
     Route: 062
  24. CYTOTEC [Concomitant]
  25. LORTAB [Concomitant]
  26. KLONOPIN [Concomitant]
     Dosage: 0.5 MG/ TID
     Route: 048
  27. POTASSIUM [Concomitant]
     Dosage: UNK
  28. NORCO [Concomitant]
  29. ELAVIL [Concomitant]
  30. PERCOCET [Concomitant]
     Dosage: 5/325MG, PRN
     Route: 048
  31. LISINOPRIL [Concomitant]
  32. LIPITOR [Concomitant]
  33. PANTOPRAZOLE [Concomitant]
     Dosage: UNK
  34. UNASYN [Concomitant]
  35. POTASSIUM CHLORIDE [Concomitant]
     Dosage: 20 MG / BID
  36. NEUROTON [Concomitant]
     Dosage: 300 MG / 4 X DAILY
  37. TRAZODONE HCL [Concomitant]
     Dosage: 50 MG , HS
  38. ALBUTEROL SULFATE AUTOHALER [Concomitant]
     Dosage: UNK
     Dates: start: 20070216
  39. MORPHINE [Concomitant]
     Dosage: 50 MCG / Q3 DAYS
  40. ZOVIRAX [Concomitant]
     Dosage: 800 MG, UNK
     Route: 048
  41. PROZAC [Concomitant]
  42. AMBIEN [Concomitant]
  43. ZOMETA [Suspect]
     Dosage: 4 MG, ONCE A MONTH
     Dates: start: 20020314
  44. ZYPREXA [Concomitant]
     Dosage: UNK
  45. CLONAZEPAM [Concomitant]
     Dosage: 0.5 MG / TID
  46. FERROUS SULFATE TAB [Concomitant]
     Dosage: UNK
  47. FOSAMAX [Concomitant]
     Dosage: UNK
  48. VICODIN [Concomitant]
  49. LASIX [Concomitant]
     Dosage: 20 MG, QD
     Route: 048
  50. ESTROGEN NOS [Concomitant]
  51. TOPROL-XL [Concomitant]
  52. PREVACID [Concomitant]
     Dosage: 15 MG / 3 HRS DAILY
  53. CIPROFLOXACIN [Concomitant]
  54. CLINDAMYCIN [Concomitant]
     Dosage: 300 MG, TID
  55. AMITRIPTYLINE HCL [Concomitant]
  56. HALCION [Concomitant]
  57. AMITRIPTYLINE HCL [Concomitant]
  58. ASPIRIN [Concomitant]
  59. PRINIVIL [Concomitant]
  60. LIDOCAINE [Concomitant]
     Dosage: UNK

REACTIONS (87)
  - ANXIETY [None]
  - PAIN IN JAW [None]
  - EATING DISORDER [None]
  - DEPRESSION [None]
  - URINARY TRACT INFECTION [None]
  - ANAEMIA [None]
  - CONTUSION [None]
  - DEATH [None]
  - GENERAL PHYSICAL HEALTH DETERIORATION [None]
  - BONE DISORDER [None]
  - AZOTAEMIA [None]
  - COUGH [None]
  - HYPERLIPIDAEMIA [None]
  - NIGHT SWEATS [None]
  - PAIN IN EXTREMITY [None]
  - BURSITIS [None]
  - EPICONDYLITIS [None]
  - ELECTROCARDIOGRAM QT PROLONGED [None]
  - DECREASED INTEREST [None]
  - CELLULITIS [None]
  - FALL [None]
  - CORONARY ARTERY DISEASE [None]
  - OSTEOPOROSIS [None]
  - DYSPHAGIA [None]
  - APHASIA [None]
  - TRANSIENT ISCHAEMIC ATTACK [None]
  - ARTERIOSCLEROSIS [None]
  - ATELECTASIS [None]
  - ABSCESS JAW [None]
  - STOMATITIS [None]
  - DEMENTIA [None]
  - SUICIDAL IDEATION [None]
  - DUODENAL ULCER [None]
  - DRUG ABUSE [None]
  - GRAVITATIONAL OEDEMA [None]
  - AGGRESSION [None]
  - INSOMNIA [None]
  - RENAL FAILURE [None]
  - JOINT SWELLING [None]
  - DYSPNOEA [None]
  - CONSTIPATION [None]
  - PROCTALGIA [None]
  - ARTHRALGIA [None]
  - INTERVERTEBRAL DISC DEGENERATION [None]
  - ROTATOR CUFF SYNDROME [None]
  - HYPERTENSION [None]
  - HIP FRACTURE [None]
  - HAEMOGLOBIN DECREASED [None]
  - WEIGHT DECREASED [None]
  - HERPES ZOSTER [None]
  - MALNUTRITION [None]
  - SKIN DISORDER [None]
  - MUSCLE SPASMS [None]
  - CEREBRAL INFARCTION [None]
  - HYPONATRAEMIA [None]
  - HIATUS HERNIA [None]
  - OSTEOMYELITIS [None]
  - GINGIVAL EROSION [None]
  - COMPRESSION FRACTURE [None]
  - GASTROINTESTINAL HAEMORRHAGE [None]
  - ASTHENIA [None]
  - HYPOKALAEMIA [None]
  - OEDEMA PERIPHERAL [None]
  - TINNITUS [None]
  - OROPHARYNGEAL PAIN [None]
  - MYALGIA [None]
  - PAIN [None]
  - LYMPHADENOPATHY [None]
  - MELAENA [None]
  - FATIGUE [None]
  - GASTROOESOPHAGEAL REFLUX DISEASE [None]
  - HEADACHE [None]
  - HEMIPARESIS [None]
  - SPINAL OSTEOARTHRITIS [None]
  - DEFORMITY [None]
  - BRONCHITIS [None]
  - PULMONARY CONGESTION [None]
  - RESTLESS LEGS SYNDROME [None]
  - SPINAL COLUMN STENOSIS [None]
  - OSTEONECROSIS OF JAW [None]
  - IMPAIRED HEALING [None]
  - PYELONEPHRITIS [None]
  - BACK PAIN [None]
  - RECTAL HAEMORRHAGE [None]
  - GINGIVAL BLEEDING [None]
  - CHEST PAIN [None]
  - HYPOLIPIDAEMIA [None]
